FAERS Safety Report 9788171 (Version 1)
Quarter: 2013Q4

REPORT INFORMATION
  Report Type: Spontaneous
  Country: US (occurrence: None)
  Receive Date: 20131227
  Receipt Date: 20131227
  Transmission Date: 20140711
  Serious: Yes (Hospitalization)
  Sender: FDA-Public Use
  Company Number: None

PATIENT
  Age: 86 Year
  Sex: Female
  Weight: 56.8 kg

DRUGS (14)
  1. XARELTO [Suspect]
     Indication: ATRIAL FIBRILLATION
     Dosage: CHRONIC USE 15 MG DAILY PO
     Route: 048
  2. ASPIRIN [Suspect]
     Indication: CEREBROVASCULAR ACCIDENT
     Dosage: CHRONIC USE 81 MG DAILY PO
     Route: 048
  3. METOPROLOL [Concomitant]
  4. MVI [Concomitant]
  5. SYNTHROID [Concomitant]
  6. MUCINEX [Concomitant]
  7. CA VIT D [Concomitant]
  8. MIRABEGRON [Concomitant]
  9. OMEPRAZOLE [Concomitant]
  10. VIT C [Concomitant]
  11. SENOKOT S [Concomitant]
  12. PERCOCET [Concomitant]
  13. MOM [Concomitant]
  14. ZINC SULFATE [Concomitant]

REACTIONS (4)
  - Lower gastrointestinal haemorrhage [None]
  - Dyspnoea [None]
  - Hypoxia [None]
  - Faeces discoloured [None]
